APPROVED DRUG PRODUCT: ORFADIN
Active Ingredient: NITISINONE
Strength: 20MG
Dosage Form/Route: CAPSULE;ORAL
Application: N021232 | Product #004 | TE Code: AB
Applicant: SWEDISH ORPHAN BIOVITRUM AB PUBL
Approved: Jun 13, 2016 | RLD: Yes | RS: Yes | Type: RX